FAERS Safety Report 9317063 (Version 1)
Quarter: 2013Q2

REPORT INFORMATION
  Report Type: Spontaneous
  Country: US (occurrence: US)
  Receive Date: 20130530
  Receipt Date: 20130530
  Transmission Date: 20140414
  Serious: No
  Sender: FDA-Public Use
  Company Number: US-NOVEN-12US004618

PATIENT
  Age: 7 Year
  Sex: Female
  Weight: 23.58 kg

DRUGS (4)
  1. DAYTRANA [Suspect]
     Indication: ATTENTION DEFICIT/HYPERACTIVITY DISORDER
     Dosage: 15 MG, QD
     Route: 062
     Dates: start: 2010
  2. SINGULAIR [Concomitant]
     Indication: HYPERSENSITIVITY
     Dosage: 4 MG, QHS
     Route: 048
  3. FLONASE [Concomitant]
     Indication: HYPERSENSITIVITY
     Dosage: 2 PUFFS, BID
     Route: 045
  4. CLONIDINE [Concomitant]
     Indication: ATTENTION DEFICIT/HYPERACTIVITY DISORDER
     Dosage: 0.2 MG, QHS
     Route: 048

REACTIONS (3)
  - Drug ineffective [Not Recovered/Not Resolved]
  - Wrong technique in drug usage process [Not Recovered/Not Resolved]
  - Product quality issue [Not Recovered/Not Resolved]
